FAERS Safety Report 4488467-4 (Version None)
Quarter: 2004Q4

REPORT INFORMATION
  Report Type: 
  Country: None (occurrence: None)
  Receive Date: 20041026
  Receipt Date: 20041019
  Transmission Date: 20050328
  Serious: Yes (Death, Life-Threatening, Hospitalization)
  Sender: FDA-Public Use
  Company Number: 2004240196US

PATIENT
  Age: 44 Year
  Sex: Male
  Weight: 64.9 kg

DRUGS (17)
  1. CAMPTOSAR [Suspect]
     Indication: METASTATIC NEOPLASM
     Dosage: 183 MG, CYCLIC, IV
     Route: 042
     Dates: start: 20040521, end: 20040702
  2. GEMCITABINE (GEMCITABINE) [Suspect]
     Indication: METASTATIC NEOPLASM
     Dosage: 1830 MG, CYCLIC, IV
     Route: 042
     Dates: start: 20040521, end: 20040702
  3. IRESSA [Suspect]
     Indication: METASTATIC NEOPLASM
     Dosage: 250 MG, CYCLIC
     Dates: start: 20040722, end: 20040801
  4. LANOXIN [Concomitant]
  5. PROMETHAZINE HCL [Concomitant]
  6. OXYCODONE (OXYCODONE) [Concomitant]
  7. IMDUR [Concomitant]
  8. PLAVIX [Concomitant]
  9. LORAZEPAM [Concomitant]
  10. AMBIEN [Concomitant]
  11. PAROXETINE [Concomitant]
  12. PREDNISONE [Concomitant]
  13. LACTULOSE [Concomitant]
  14. MORPHINE SULFATE [Concomitant]
  15. CARAFATE [Concomitant]
  16. SENOKOT-S (SENNA, DOCUSATE SODIUM) [Concomitant]
  17. WARFARIN SODIUM [Concomitant]

REACTIONS (7)
  - COAGULOPATHY [None]
  - DISEASE PROGRESSION [None]
  - GASTROINTESTINAL HAEMORRHAGE [None]
  - HAEMOGLOBIN DECREASED [None]
  - HEPATIC FAILURE [None]
  - INTERNATIONAL NORMALISED RATIO INCREASED [None]
  - PROTHROMBIN TIME PROLONGED [None]
